FAERS Safety Report 10244356 (Version 1)
Quarter: 2014Q2

REPORT INFORMATION
  Report Type: Spontaneous
  Country: GB (occurrence: GB)
  Receive Date: 20140618
  Receipt Date: 20140618
  Transmission Date: 20141212
  Serious: Yes (Disabling, Other)
  Sender: FDA-Public Use
  Company Number: GB-WATSON-2014-12748

PATIENT
  Age: 80 Year
  Sex: Female
  Weight: 51 kg

DRUGS (3)
  1. OMEPRAZOLE (UNKNOWN) [Suspect]
     Indication: GASTROINTESTINAL ULCER
     Dosage: 80 MG, UNKNOWN; 80MG REDUCED TO 20MG.
     Route: 048
  2. OMEPRAZOLE (UNKNOWN) [Suspect]
     Dosage: 20 MG, UNKNOWN; 80MG REDUCED TO 20MG.
     Route: 048
  3. PROZAC [Concomitant]
     Indication: PRODUCT USED FOR UNKNOWN INDICATION
     Dosage: 20 MG, UNKNOWN
     Route: 065

REACTIONS (5)
  - Myalgia [Not Recovered/Not Resolved]
  - Joint swelling [Not Recovered/Not Resolved]
  - Alopecia [Not Recovered/Not Resolved]
  - Fatigue [Unknown]
  - Back pain [Not Recovered/Not Resolved]
